FAERS Safety Report 5636801-1 (Version None)
Quarter: 2008Q1

REPORT INFORMATION
  Report Type: 
  Country: None (occurrence: None)
  Receive Date: 20080219
  Receipt Date: 20080219
  Transmission Date: 20080703
  Serious: No
  Sender: FDA-Public Use
  Company Number: None

PATIENT
  Age: 53 Year
  Sex: Male

DRUGS (1)
  1. ESTRADIOL [Suspect]
     Dosage: 2MG EVERY DAY PO
     Route: 048
     Dates: start: 20000509, end: 20070723

REACTIONS (1)
  - POSTMENOPAUSAL HAEMORRHAGE [None]
